FAERS Safety Report 24613669 (Version 2)
Quarter: 2024Q4

REPORT INFORMATION
  Report Type: Spontaneous
  Country: JP (occurrence: JP)
  Receive Date: 20241113
  Receipt Date: 20241114
  Transmission Date: 20250115
  Serious: Yes (Hospitalization, Other)
  Sender: ALEXION PHARMACEUTICALS
  Company Number: JP-ASTRAZENECA-240111578_063010_P_1

PATIENT
  Age: 8 Decade

DRUGS (40)
  1. DAPAGLIFLOZIN [Suspect]
     Active Substance: DAPAGLIFLOZIN
     Indication: Cardiac failure chronic
     Dosage: UNK
  2. DAPAGLIFLOZIN [Suspect]
     Active Substance: DAPAGLIFLOZIN
     Dosage: UNK
  3. DAPAGLIFLOZIN [Suspect]
     Active Substance: DAPAGLIFLOZIN
     Dosage: UNK
  4. DAPAGLIFLOZIN [Suspect]
     Active Substance: DAPAGLIFLOZIN
     Dosage: UNK
  5. DAPAGLIFLOZIN [Suspect]
     Active Substance: DAPAGLIFLOZIN
     Dosage: DOSE UNKNOWN
  6. DAPAGLIFLOZIN [Suspect]
     Active Substance: DAPAGLIFLOZIN
     Dosage: DOSE UNKNOWN
  7. DAPAGLIFLOZIN [Suspect]
     Active Substance: DAPAGLIFLOZIN
     Dosage: DOSE UNKNOWN
  8. DAPAGLIFLOZIN [Suspect]
     Active Substance: DAPAGLIFLOZIN
     Dosage: DOSE UNKNOWN
  9. EDOXABAN [Concomitant]
     Active Substance: EDOXABAN
     Dosage: 30 MILLIGRAM
  10. EDOXABAN [Concomitant]
     Active Substance: EDOXABAN
     Dosage: 30 MILLIGRAM
     Route: 065
  11. BEPRIDIL HYDROCHLORIDE [Concomitant]
     Active Substance: BEPRIDIL HYDROCHLORIDE
  12. BEPRIDIL HYDROCHLORIDE [Concomitant]
     Active Substance: BEPRIDIL HYDROCHLORIDE
     Route: 065
  13. Hyperten [Concomitant]
     Dosage: 1.25 MILLIGRAM
     Route: 065
  14. Hyperten [Concomitant]
     Dosage: 1.25 MILLIGRAM
  15. Hyperten [Concomitant]
     Route: 065
  16. Hyperten [Concomitant]
  17. Hyperten [Concomitant]
     Route: 065
  18. Hyperten [Concomitant]
  19. Hyperten [Concomitant]
     Route: 065
  20. Hyperten [Concomitant]
  21. FUROSEMIDE [Concomitant]
     Active Substance: FUROSEMIDE
  22. FUROSEMIDE [Concomitant]
     Active Substance: FUROSEMIDE
     Route: 065
  23. FUROSEMIDE [Concomitant]
     Active Substance: FUROSEMIDE
  24. FUROSEMIDE [Concomitant]
     Active Substance: FUROSEMIDE
     Route: 065
  25. FUROSEMIDE [Concomitant]
     Active Substance: FUROSEMIDE
  26. FUROSEMIDE [Concomitant]
     Active Substance: FUROSEMIDE
     Route: 065
  27. FUROSEMIDE [Concomitant]
     Active Substance: FUROSEMIDE
  28. FUROSEMIDE [Concomitant]
     Active Substance: FUROSEMIDE
     Route: 065
  29. FUROSEMIDE [Concomitant]
     Active Substance: FUROSEMIDE
     Route: 065
  30. FUROSEMIDE [Concomitant]
     Active Substance: FUROSEMIDE
  31. FUROSEMIDE [Concomitant]
     Active Substance: FUROSEMIDE
     Route: 065
  32. FUROSEMIDE [Concomitant]
     Active Substance: FUROSEMIDE
  33. FUROSEMIDE [Concomitant]
     Active Substance: FUROSEMIDE
     Route: 065
  34. FUROSEMIDE [Concomitant]
     Active Substance: FUROSEMIDE
  35. FUROSEMIDE [Concomitant]
     Active Substance: FUROSEMIDE
     Route: 065
  36. FUROSEMIDE [Concomitant]
     Active Substance: FUROSEMIDE
  37. EDOXABAN [Concomitant]
     Active Substance: EDOXABAN
     Dosage: 30 MILLIGRAM
  38. EDOXABAN [Concomitant]
     Active Substance: EDOXABAN
     Dosage: 30 MILLIGRAM
     Route: 065
  39. BEPRIDIL [Concomitant]
     Active Substance: BEPRIDIL
     Dosage: 50 MILLIGRAM
  40. BEPRIDIL [Concomitant]
     Active Substance: BEPRIDIL
     Dosage: 50 MILLIGRAM
     Route: 065

REACTIONS (3)
  - Blood potassium increased [Recovering/Resolving]
  - Blood creatinine increased [Recovering/Resolving]
  - Dehydration [Unknown]
